FAERS Safety Report 12013159 (Version 1)
Quarter: 2016Q1

REPORT INFORMATION
  Report Type: Spontaneous
  Country: GB (occurrence: GB)
  Receive Date: 20160205
  Receipt Date: 20160205
  Transmission Date: 20160526
  Serious: Yes (Hospitalization, Disabling, Other)
  Sender: FDA-Public Use
  Company Number: GB-PFIZER INC-2016059064

PATIENT
  Age: 11 Year
  Sex: Female
  Weight: 27 kg

DRUGS (3)
  1. HYDROCORTISONE ACETATE. [Suspect]
     Active Substance: HYDROCORTISONE ACETATE
     Indication: ECZEMA NUMMULAR
     Dosage: OVER 15 TUBES
     Route: 061
     Dates: start: 20120801, end: 20150401
  2. ELOCOM [Suspect]
     Active Substance: MOMETASONE FUROATE
     Indication: ECZEMA NUMMULAR
     Dosage: OVER 15 TUBES
     Route: 061
     Dates: start: 20120801, end: 20150401
  3. EUMOVATE [Suspect]
     Active Substance: CLOBETASONE BUTYRATE
     Indication: ECZEMA NUMMULAR
     Dosage: OVER 15 TUBES
     Route: 061
     Dates: start: 20120801, end: 20150401

REACTIONS (15)
  - Eczema nummular [Recovering/Resolving]
  - Eczema [Recovering/Resolving]
  - Swelling [Recovering/Resolving]
  - Pruritus [Recovering/Resolving]
  - Medication error [Recovering/Resolving]
  - Alopecia [Recovering/Resolving]
  - Insomnia [Recovering/Resolving]
  - Drug withdrawal syndrome [Unknown]
  - Dry skin [Recovering/Resolving]
  - Condition aggravated [Recovering/Resolving]
  - Anxiety [Recovering/Resolving]
  - Pain [Recovering/Resolving]
  - Secretion discharge [Recovering/Resolving]
  - Drug dependence [Unknown]
  - Skin exfoliation [Recovering/Resolving]
